FAERS Safety Report 19672338 (Version 1)
Quarter: 2021Q3

REPORT INFORMATION
  Report Type: Other
  Country: US (occurrence: US)
  Receive Date: 20210808
  Receipt Date: 20210808
  Transmission Date: 20211014
  Serious: Yes (Other)
  Sender: FDA-Public Use
  Company Number: US-ROCHE-2882135

PATIENT
  Age: 48 Year
  Sex: Female
  Weight: 96.25 kg

DRUGS (2)
  1. OCREVUS [Suspect]
     Active Substance: OCRELIZUMAB
     Route: 042
  2. OCREVUS [Suspect]
     Active Substance: OCRELIZUMAB
     Indication: RELAPSING-REMITTING MULTIPLE SCLEROSIS
     Dosage: DATE OF TREATMENT: 25/MAR/2020, 08/DEC/2020, 08/JUN/2021
     Route: 042
     Dates: start: 20200310

REACTIONS (3)
  - Multiple sclerosis [Recovered/Resolved]
  - Seroma [Recovered/Resolved]
  - Hernia [Recovered/Resolved]

NARRATIVE: CASE EVENT DATE: 202102
